FAERS Safety Report 23998645 (Version 1)
Quarter: 2024Q2

REPORT INFORMATION
  Report Type: Spontaneous
  Country: IT (occurrence: IT)
  Receive Date: 20240621
  Receipt Date: 20240621
  Transmission Date: 20240716
  Serious: Yes (Hospitalization)
  Sender: FDA-Public Use
  Company Number: None

PATIENT
  Age: 79 Year
  Sex: Male

DRUGS (7)
  1. ATORVASTATIN [Suspect]
     Active Substance: ATORVASTATIN
     Indication: Acute coronary syndrome
     Dosage: 40MG/DAY
     Dates: start: 202211, end: 20221203
  2. COLCHICINE [Interacting]
     Active Substance: COLCHICINE
     Indication: Acute coronary syndrome
     Dosage: 1/2 TABLET OF 1 MG IN THE MORNING + 1 WHOLE TABLET OF 1 MG IN THE EVENING
     Dates: start: 20221104, end: 20221203
  3. NITROGLYCERIN [Concomitant]
     Active Substance: NITROGLYCERIN
     Indication: Ischaemic heart disease prophylaxis
     Dosage: 10MG/DAY TO BE APPLIED BETWEEN 20.00-08.00
  4. TICAGRELOR [Concomitant]
     Active Substance: TICAGRELOR
     Indication: Ischaemic heart disease prophylaxis
     Dosage: 90MG/BID
  5. ASPIRIN [Concomitant]
     Active Substance: ASPIRIN
     Indication: Ischaemic heart disease prophylaxis
     Dosage: 100MG/DAY
  6. CHOLECALCIFEROL [Concomitant]
     Active Substance: CHOLECALCIFEROL
     Indication: Osteoporosis prophylaxis
     Dosage: 50,000/WEEK
  7. RAMIPRIL [Concomitant]
     Active Substance: RAMIPRIL
     Indication: Hypertension
     Dosage: 2.5MG/DAY

REACTIONS (6)
  - Concussion [Recovered/Resolved]
  - Myalgia [Recovered/Resolved]
  - Asthenia [Recovered/Resolved]
  - Fall [Recovered/Resolved]
  - Gait disturbance [Recovered/Resolved]
  - Muscle necrosis [Recovered/Resolved]

NARRATIVE: CASE EVENT DATE: 20221101
